FAERS Safety Report 26073672 (Version 1)
Quarter: 2025Q4

REPORT INFORMATION
  Report Type: Spontaneous
  Country: EU (occurrence: EU)
  Receive Date: 20251121
  Receipt Date: 20251121
  Transmission Date: 20260118
  Serious: Yes (Life-Threatening)
  Sender: ACCORD
  Company Number: None

PATIENT
  Age: 71 Year
  Sex: Female
  Weight: 54 kg

DRUGS (1)
  1. OXALIPLATIN [Suspect]
     Active Substance: OXALIPLATIN
     Indication: Pancreatic carcinoma
     Dosage: DRUG ADMINISTRATION BETWEEN 16:35 AND 16:40 (DATE UNKNOWN).

REACTIONS (7)
  - Malaise [Recovering/Resolving]
  - Asthenia [Recovering/Resolving]
  - Anaphylactic shock [Recovering/Resolving]
  - Blood pressure abnormal [Recovering/Resolving]
  - Heart rate abnormal [Recovering/Resolving]
  - Oxygen saturation abnormal [Recovering/Resolving]
  - Body temperature abnormal [Recovering/Resolving]
